FAERS Safety Report 10772105 (Version 1)
Quarter: 2015Q1

REPORT INFORMATION
  Report Type: Spontaneous
  Country: CN (occurrence: CN)
  Receive Date: 20150206
  Receipt Date: 20150206
  Transmission Date: 20150721
  Serious: Yes (Hospitalization)
  Sender: FDA-Public Use
  Company Number: CN-ASTRAZENECA-2015SE00320

PATIENT
  Age: 62 Year
  Sex: Female

DRUGS (4)
  1. RHINOCORT [Suspect]
     Active Substance: BUDESONIDE
     Route: 045
  2. VALSARTAN. [Concomitant]
     Active Substance: VALSARTAN
     Route: 065
  3. RHINOCORT [Suspect]
     Active Substance: BUDESONIDE
     Dosage: 64 UG, EACH NOSTRIL
     Route: 045
  4. LINGYANGQINGFEI PARTICLES [Concomitant]
     Dosage: 1 PACKAGE TWO TIMES A DAY

REACTIONS (4)
  - Anxiety disorder [Unknown]
  - Upper-airway cough syndrome [Unknown]
  - Dry mouth [Unknown]
  - Off label use [Unknown]
